FAERS Safety Report 5468320-X (Version None)
Quarter: 2007Q3

REPORT INFORMATION
  Report Type: 
  Country: None (occurrence: None)
  Receive Date: 20070926
  Receipt Date: 20070925
  Transmission Date: 20080115
  Serious: Yes (Death, Hospitalization)
  Sender: FDA-Public Use
  Company Number: A0673111A

PATIENT
  Age: 83 Year
  Sex: Male
  Weight: 85.5 kg

DRUGS (2)
  1. TOPOTECAN [Suspect]
     Dosage: 4MGM2 CYCLIC
     Route: 042
     Dates: start: 20070806
  2. CARBOPLATIN [Suspect]
     Dosage: 428MG CUMULATIVE DOSE
     Route: 042
     Dates: start: 20070806

REACTIONS (9)
  - ACCIDENTAL POISONING [None]
  - DEHYDRATION [None]
  - DISEASE PROGRESSION [None]
  - DYSURIA [None]
  - FATIGUE [None]
  - NAUSEA [None]
  - PNEUMONIA [None]
  - RENAL FAILURE ACUTE [None]
  - VOMITING [None]
